FAERS Safety Report 11054856 (Version 3)
Quarter: 2015Q2

REPORT INFORMATION
  Report Type: Spontaneous
  Country: US (occurrence: US)
  Receive Date: 20150422
  Receipt Date: 20150507
  Transmission Date: 20150821
  Serious: Yes (Other)
  Sender: FDA-Public Use
  Company Number: US-LEO PHARMA-233757

PATIENT
  Age: 63 Year
  Sex: Female

DRUGS (1)
  1. PICATO [Suspect]
     Active Substance: INGENOL MEBUTATE
     Indication: ACTINIC KERATOSIS
     Route: 061
     Dates: start: 20150405, end: 20150405

REACTIONS (8)
  - Product quality issue [Unknown]
  - Administration site scar [Recovered/Resolved with Sequelae]
  - Inappropriate schedule of drug administration [Unknown]
  - Application site vesicles [Recovered/Resolved with Sequelae]
  - Application site ulcer [Recovered/Resolved with Sequelae]
  - Incorrect dosage administered [Unknown]
  - Application site infection [Recovered/Resolved with Sequelae]
  - Application site erythema [Recovered/Resolved with Sequelae]
